FAERS Safety Report 6478329-5 (Version None)
Quarter: 2009Q4

REPORT INFORMATION
  Report Type: 
  Country: None (occurrence: None)
  Receive Date: 20091119
  Receipt Date: 20091029
  Transmission Date: 20100525
  Serious: Yes (Life-Threatening, Disabling, Other)
  Sender: FDA-Public Use
  Company Number: 2009SP033235

PATIENT
  Age: 25 Year
  Sex: Female
  Weight: 71 kg

DRUGS (3)
  1. IMPLANON [Suspect]
     Indication: CONTRACEPTION
     Dosage: 1 DF; ; SC
     Route: 058
     Dates: start: 20090507, end: 20090924
  2. FEMODENE [Concomitant]
  3. IMPLANON [Suspect]

REACTIONS (1)
  - HYPOTHYROIDISM [None]
